FAERS Safety Report 4822811-0 (Version None)
Quarter: 2005Q4

REPORT INFORMATION
  Report Type: 
  Country: None (occurrence: None)
  Receive Date: 20051108
  Receipt Date: 20051028
  Transmission Date: 20060501
  Serious: Yes (Disabling)
  Sender: FDA-Public Use
  Company Number: US-ROCHE-423060

PATIENT
  Age: 78 Year
  Sex: Female
  Weight: 63.5 kg

DRUGS (2)
  1. XELODA [Suspect]
     Indication: COLON CANCER
     Dosage: FREQUENCY REPORTED AS 5 DAYS PER WEEK.
     Route: 048
     Dates: start: 20010615, end: 20050915
  2. 1 CONCOMITANT DRUG [Concomitant]
     Dosage: DRUG REPORTED AS HEART MEDICATIONS NOS.
     Route: 048

REACTIONS (1)
  - POLYMYALGIA RHEUMATICA [None]
